FAERS Safety Report 5271969-0 (Version None)
Quarter: 2007Q1

REPORT INFORMATION
  Report Type: 
  Country: None (occurrence: None)
  Receive Date: 20061214
  Receipt Date: 20060628
  Transmission Date: 20070707
  Serious: Yes (Other)
  Sender: FDA-Public Use
  Company Number: 2006045146

PATIENT
  Age: 61 Year
  Sex: Male
  Weight: 105.2345 kg

DRUGS (1)
  1. BEXTRA [Suspect]
     Indication: ILL-DEFINED DISORDER
     Dosage: 10 MG (10 MG,1 IN 1 D)
     Dates: start: 20020726, end: 20030609

REACTIONS (1)
  - MYOCARDIAL INFARCTION [None]
